FAERS Safety Report 5110875-9 (Version None)
Quarter: 2006Q3

REPORT INFORMATION
  Report Type: 
  Country: None (occurrence: None)
  Receive Date: 20060918
  Receipt Date: 20060911
  Transmission Date: 20061208
  Serious: Yes (Death, Life-Threatening)
  Sender: FDA-Public Use
  Company Number: HQWYE892123AUG06

PATIENT
  Age: 45 Year
  Sex: Male

DRUGS (6)
  1. MYLOTARG [Suspect]
     Indication: ACUTE MYELOID LEUKAEMIA RECURRENT
     Dosage: 9MG/M^2 1X PER 1 DAY; INTRAVENOUS DRIP
     Route: 041
     Dates: start: 20060816, end: 20060816
  2. VANCOCIN HCL [Concomitant]
  3. FUNGUARD           (MICAFUNGIN SODIUM) [Concomitant]
  4. SOLU-MEDROL [Concomitant]
  5. LASIX [Concomitant]
  6. VFEND [Concomitant]

REACTIONS (4)
  - PNEUMONIA [None]
  - VENOOCCLUSIVE LIVER DISEASE [None]
  - WEIGHT INCREASED [None]
  - WHITE BLOOD CELL COUNT DECREASED [None]
